FAERS Safety Report 23274354 (Version 1)
Quarter: 2023Q4

REPORT INFORMATION
  Report Type: Spontaneous
  Country: US (occurrence: US)
  Receive Date: 20231208
  Receipt Date: 20231208
  Transmission Date: 20240109
  Serious: No
  Sender: FDA-Public Use
  Company Number: US-AUROBINDO-AUR-APL-2023-063272

PATIENT
  Sex: Female
  Weight: 49 kg

DRUGS (1)
  1. PROGESTERONE [Suspect]
     Active Substance: PROGESTERONE
     Indication: Menopausal symptoms
     Dosage: 01 CAPSULE AT BED TIME EVERY DAY BY MOUTH
     Route: 048

REACTIONS (2)
  - Eosinophilic oesophagitis [Unknown]
  - Urticaria [Unknown]

NARRATIVE: CASE EVENT DATE: 20230914
